FAERS Safety Report 7146022-1 (Version None)
Quarter: 2011Q1

REPORT INFORMATION
  Report Type: 
  Country: None (occurrence: None)
  Receive Date: 20101123
  Receipt Date: 20101110
  Transmission Date: 20110831
  Serious: Yes (Disabling, Other)
  Sender: FDA-Public Use
  Company Number: ACO_20313_2010

PATIENT
  Age: 68 Year
  Sex: Male
  Weight: 67.1 kg

DRUGS (17)
  1. TOPROL-XL [Concomitant]
  2. AMANTADINE HCL [Concomitant]
  3. PLAVIX [Concomitant]
  4. ASPIRIN [Concomitant]
  5. CRESTOR [Concomitant]
  6. AMPYRA [Suspect]
     Indication: BALANCE DISORDER
     Dosage: 10 MG, BID, ORAL
     Route: 048
     Dates: start: 20100901, end: 20100918
  7. AMPYRA [Suspect]
     Indication: GAIT DISTURBANCE
     Dosage: 10 MG, BID, ORAL
     Route: 048
     Dates: start: 20100901, end: 20100918
  8. MACROBID /00024401/ (NITROFURANTOIN) [Concomitant]
  9. FISH OIL (FISH OIL) [Concomitant]
  10. NIACIN [Concomitant]
  11. VITAMIN B COMPLEX /00212701/ (NICOTINAMIDE, PYRIDOXINE HYDROCHLORIDE, [Concomitant]
  12. VITAMINS WITH MINERALS [Concomitant]
  13. CELEBREX [Concomitant]
  14. FOLIC ACID [Concomitant]
  15. VITAMIN B1 TAB [Concomitant]
  16. SYNTHROID [Concomitant]
  17. AVONEX [Concomitant]

REACTIONS (2)
  - NUTRITIONAL CONDITION ABNORMAL [None]
  - HALLUCINATION, VISUAL [None]
